FAERS Safety Report 14831408 (Version 2)
Quarter: 2018Q3

REPORT INFORMATION
  Report Type: Spontaneous
  Country: US (occurrence: US)
  Receive Date: 20180501
  Receipt Date: 20180726
  Transmission Date: 20181010
  Serious: Yes (Other)
  Sender: FDA-Public Use
  Company Number: US-ASTRAZENECA-2018SE58087

PATIENT
  Age: 58 Year
  Sex: Female
  Weight: 119.7 kg

DRUGS (30)
  1. CLONIDINE. [Concomitant]
     Active Substance: CLONIDINE
  2. MAALOX ANTACID [Concomitant]
     Active Substance: ALUMINUM HYDROXIDE\DIMETHICONE\MAGNESIUM HYDROXIDE
     Dosage: DAILY
  3. FLUTICASONE. [Concomitant]
     Active Substance: FLUTICASONE
  4. VISTARIL [Concomitant]
     Active Substance: HYDROXYZINE PAMOATE
  5. DILTIAZEM. [Concomitant]
     Active Substance: DILTIAZEM
  6. NORTRIPTYLINE [Concomitant]
     Active Substance: NORTRIPTYLINE
  7. GEODON [Concomitant]
     Active Substance: ZIPRASIDONE HYDROCHLORIDE\ZIPRASIDONE MESYLATE
  8. VYVANSE [Concomitant]
     Active Substance: LISDEXAMFETAMINE DIMESYLATE
  9. PRILOSEC [Suspect]
     Active Substance: OMEPRAZOLE MAGNESIUM
     Indication: GASTROOESOPHAGEAL REFLUX DISEASE
     Route: 048
     Dates: start: 2008, end: 2015
  10. PRILOSEC [Suspect]
     Active Substance: OMEPRAZOLE MAGNESIUM
     Indication: GASTROOESOPHAGEAL REFLUX DISEASE
     Dosage: 1.0DF UNKNOWN
     Route: 048
     Dates: start: 20140709
  11. XANAX [Concomitant]
     Active Substance: ALPRAZOLAM
  12. IBUPROFEN. [Concomitant]
     Active Substance: IBUPROFEN
  13. NITROSTAT [Concomitant]
     Active Substance: NITROGLYCERIN
  14. LORAZEPAM. [Concomitant]
     Active Substance: LORAZEPAM
  15. ABILIFY [Concomitant]
     Active Substance: ARIPIPRAZOLE
  16. NEXIUM [Suspect]
     Active Substance: ESOMEPRAZOLE MAGNESIUM
     Indication: DYSPEPSIA
     Dosage: 40.0MG UNKNOWN
     Route: 048
     Dates: start: 20100222
  17. PRILOSEC [Suspect]
     Active Substance: OMEPRAZOLE MAGNESIUM
     Indication: GASTROOESOPHAGEAL REFLUX DISEASE
     Route: 048
     Dates: start: 2008, end: 2015
  18. TRAZODONE [Concomitant]
     Active Substance: TRAZODONE HYDROCHLORIDE
  19. PRILOSEC [Suspect]
     Active Substance: OMEPRAZOLE MAGNESIUM
     Indication: GASTROOESOPHAGEAL REFLUX DISEASE
     Dosage: OMEPRAZOLE20.0MG UNKNOWN
     Route: 065
     Dates: start: 20081209
  20. LIPITOR [Concomitant]
     Active Substance: ATORVASTATIN CALCIUM
  21. FUROSEMIDE. [Concomitant]
     Active Substance: FUROSEMIDE
  22. HYDRALAZINE [Concomitant]
     Active Substance: HYDRALAZINE HYDROCHLORIDE
  23. SPIRONOLACTONE. [Concomitant]
     Active Substance: SPIRONOLACTONE
  24. NEXIUM [Suspect]
     Active Substance: ESOMEPRAZOLE MAGNESIUM
     Indication: DYSPEPSIA
     Dosage: DAILY
     Route: 048
     Dates: start: 2009, end: 2014
  25. DICYCLOMINE [Concomitant]
     Active Substance: DICYCLOMINE HYDROCHLORIDE
  26. CARVEDILOL. [Concomitant]
     Active Substance: CARVEDILOL
  27. PRILOSEC [Suspect]
     Active Substance: OMEPRAZOLE MAGNESIUM
     Indication: GASTROOESOPHAGEAL REFLUX DISEASE
     Dosage: OMEPRAZOLE20.0MG UNKNOWN
     Route: 065
     Dates: start: 20081209
  28. NOVOLIN [Concomitant]
     Active Substance: INSULIN HUMAN
  29. PRILOSEC [Suspect]
     Active Substance: OMEPRAZOLE MAGNESIUM
     Indication: GASTROOESOPHAGEAL REFLUX DISEASE
     Dosage: 1.0DF UNKNOWN
     Route: 048
     Dates: start: 20140709
  30. PEPTO?BISMOL [Concomitant]
     Active Substance: BISMUTH SUBSALICYLATE
     Dosage: AS NEEDED

REACTIONS (5)
  - Depression [Unknown]
  - Acute kidney injury [Unknown]
  - Chronic kidney disease [Unknown]
  - Renal failure [Not Recovered/Not Resolved]
  - Anxiety disorder [Unknown]

NARRATIVE: CASE EVENT DATE: 20131022
